FAERS Safety Report 7739478-4 (Version None)
Quarter: 2011Q3

REPORT INFORMATION
  Report Type: 
  Country: None (occurrence: None)
  Receive Date: 20110909
  Receipt Date: 20110826
  Transmission Date: 20111222
  Serious: Yes (Hospitalization)
  Sender: FDA-Public Use
  Company Number: RS-MYLANLABS-2011S1018212

PATIENT
  Age: 31 Year
  Sex: Female

DRUGS (1)
  1. PROPRANOLOL [Suspect]
     Indication: OVERDOSE
     Route: 048

REACTIONS (7)
  - MULTIPLE DRUG OVERDOSE [None]
  - TACHYCARDIA [None]
  - CONVULSION [None]
  - HYPOVENTILATION [None]
  - HYPOGLYCAEMIA [None]
  - COMA [None]
  - HYPOTENSION [None]
